FAERS Safety Report 7972557-5 (Version None)
Quarter: 2011Q4

REPORT INFORMATION
  Report Type: 
  Country: None (occurrence: None)
  Receive Date: 20111209
  Receipt Date: 20111129
  Transmission Date: 20120403
  Serious: Yes (Other)
  Sender: FDA-Public Use
  Company Number: 2011MA016132

PATIENT
  Age: 40 Year
  Sex: Female

DRUGS (1)
  1. CITALOPRAM HYDROBROMIDE [Suspect]
     Indication: DEPRESSION
     Dosage: 40 MG;QD;PO
     Route: 048
     Dates: start: 20110615, end: 20111017

REACTIONS (2)
  - GRAND MAL CONVULSION [None]
  - IMPAIRED DRIVING ABILITY [None]
